FAERS Safety Report 20114776 (Version 2)
Quarter: 2021Q4

REPORT INFORMATION
  Report Type: Spontaneous
  Country: CH (occurrence: CH)
  Receive Date: 20211125
  Receipt Date: 20211206
  Transmission Date: 20220303
  Serious: Yes (Death, Other)
  Sender: FDA-Public Use
  Company Number: CH-NAPPMUNDI-GBR-2021-0089542

PATIENT
  Sex: Female

DRUGS (4)
  1. OXYCODONE HYDROCHLORIDE [Suspect]
     Active Substance: OXYCODONE HYDROCHLORIDE
     Indication: Product used for unknown indication
     Dosage: UNK
     Route: 065
  2. OXYCODONE HYDROCHLORIDE [Suspect]
     Active Substance: OXYCODONE HYDROCHLORIDE
     Indication: Product used for unknown indication
     Dosage: UNK
     Route: 065
  3. OXYCODONE HYDROCHLORIDE [Suspect]
     Active Substance: OXYCODONE HYDROCHLORIDE
     Dosage: 1 ML IN THE MORNING, 0.5 ML AT 3 P.M. AND 2.5 AT BEDTIME + AS NEEDED
     Route: 065
  4. OXYCODONE HYDROCHLORIDE [Suspect]
     Active Substance: OXYCODONE HYDROCHLORIDE
     Dosage: 1 ML IN THE MORNING, 0.5 ML AT 3 P.M. AND 2.5 AT BEDTIME + AS NEEDED
     Route: 065

REACTIONS (2)
  - Drug abuse [Unknown]
  - Product colour issue [Unknown]
